FAERS Safety Report 7445489-9 (Version None)
Quarter: 2011Q2

REPORT INFORMATION
  Report Type: 
  Country: None (occurrence: None)
  Receive Date: 20110420
  Receipt Date: 20110407
  Transmission Date: 20111010
  Serious: Yes (Hospitalization)
  Sender: FDA-Public Use
  Company Number: 2011MA003557

PATIENT
  Age: 76 Year
  Sex: Female

DRUGS (2)
  1. SERTRALINE HYDROCHLORIDE [Suspect]
     Indication: DEPRESSED MOOD
  2. BIPHOSPHONATES [Concomitant]

REACTIONS (6)
  - LEUKOCYTOCLASTIC VASCULITIS [None]
  - COMPUTERISED TOMOGRAM ABNORMAL [None]
  - ANGIOPATHY [None]
  - EOSINOPHILIC PNEUMONIA [None]
  - RESPIRATORY FAILURE [None]
  - LYMPHADENOPATHY [None]
